FAERS Safety Report 8862723 (Version 4)
Quarter: 2013Q3

REPORT INFORMATION
  Report Type: Report from Study
  Country: JP (occurrence: JP)
  Receive Date: 20121026
  Receipt Date: 20130801
  Transmission Date: 20140515
  Serious: Yes (Hospitalization, Other)
  Sender: FDA-Public Use
  Company Number: JP-VERTEX PHARMACEUTICAL INC.-AE-2012-007617

PATIENT
  Age: 63 Year
  Sex: Female

DRUGS (14)
  1. VX-950 (TELAPREVIR) [Suspect]
     Indication: CHRONIC HEPATITIS C
     Dosage: 1500 MG, QD
     Route: 048
     Dates: start: 20120207, end: 20120313
  2. VX-950 (TELAPREVIR) [Suspect]
     Dosage: 1000 MG, QD
     Route: 048
     Dates: start: 20120314, end: 20120403
  3. VX-950 (TELAPREVIR) [Suspect]
     Dosage: 1500 MG, QD
     Route: 048
     Dates: start: 20120404, end: 20120501
  4. PEGINTRON [Suspect]
     Indication: CHRONIC HEPATITIS C
     Dosage: 80 ?G, QW
     Route: 058
     Dates: start: 20120207, end: 20120530
  5. PEGINTRON [Suspect]
     Dosage: 80 ?G, QW
     Route: 058
     Dates: start: 20120613, end: 20120724
  6. REBETOL [Suspect]
     Indication: CHRONIC HEPATITIS C
     Dosage: 400 MG, QD
     Route: 048
     Dates: start: 20120207, end: 20120306
  7. REBETOL [Suspect]
     Dosage: 200 MG, QD
     Route: 048
     Dates: start: 20120307, end: 20120501
  8. REBETOL [Suspect]
     Dosage: 400 MG, QD
     Route: 048
     Dates: start: 20120502, end: 20120509
  9. REBETOL [Suspect]
     Dosage: 200 MG, QD
     Route: 048
     Dates: start: 20120516, end: 20120530
  10. REBETOL [Suspect]
     Dosage: 600 MG, QD
     Route: 048
     Dates: start: 20120613, end: 20120724
  11. CINAL [Concomitant]
     Dosage: 600 MG, QD
     Route: 048
     Dates: end: 20120327
  12. MICARDIS [Concomitant]
     Dosage: 20 MG, QD
     Route: 048
     Dates: end: 20120320
  13. URSO [Concomitant]
     Dosage: 600 MG, QD
     Route: 048
     Dates: end: 20120327
  14. XYZAL [Concomitant]
     Dosage: 5 MG, QD
     Route: 048
     Dates: start: 20120613, end: 20120724

REACTIONS (3)
  - Sepsis [Recovered/Resolved]
  - Anaemia [Recovered/Resolved]
  - Platelet count decreased [Recovered/Resolved]
